FAERS Safety Report 16490412 (Version 1)
Quarter: 2019Q2

REPORT INFORMATION
  Report Type: Spontaneous
  Country: US (occurrence: US)
  Receive Date: 20190628
  Receipt Date: 20190628
  Transmission Date: 20190711
  Serious: No
  Sender: FDA-Public Use
  Company Number: US-TEVA-2019-US-1059372

PATIENT
  Age: 32 Year
  Sex: Female

DRUGS (1)
  1. TRI-SPRINTEC [Suspect]
     Active Substance: ETHINYL ESTRADIOL\NORGESTIMATE
     Indication: CONTRACEPTION
     Dates: start: 201902, end: 20190530

REACTIONS (5)
  - Polymenorrhoea [Unknown]
  - Muscle spasms [Unknown]
  - Headache [Unknown]
  - Product substitution issue [Unknown]
  - Abdominal distension [Unknown]

NARRATIVE: CASE EVENT DATE: 201902
